FAERS Safety Report 9005573 (Version 1)
Quarter: 2013Q1

REPORT INFORMATION
  Report Type: Spontaneous
  Country: BR (occurrence: BR)
  Receive Date: 20130109
  Receipt Date: 20130109
  Transmission Date: 20140127
  Serious: Yes (Other)
  Sender: FDA-Public Use
  Company Number: BR-PFIZER INC-2013004057

PATIENT
  Age: 58 Year
  Sex: Male

DRUGS (4)
  1. XALATAN [Suspect]
     Indication: GLAUCOMA
     Dosage: 2 DROPS EACH EYE , 2X/DAY
     Route: 047
     Dates: start: 200801
  2. XALATAN [Suspect]
     Indication: EYE PAIN
  3. BRIMONIDINE [Concomitant]
     Indication: GLAUCOMA
     Dosage: UNK
     Dates: start: 200801
  4. TIMOLOL [Concomitant]
     Indication: GLAUCOMA
     Dosage: UNK
     Dates: start: 200801

REACTIONS (3)
  - Blindness [Unknown]
  - Retinal detachment [Unknown]
  - Off label use [Not Recovered/Not Resolved]
